FAERS Safety Report 6306097-6 (Version None)
Quarter: 2009Q3

REPORT INFORMATION
  Report Type: 
  Country: None (occurrence: None)
  Receive Date: 20090812
  Receipt Date: 20090804
  Transmission Date: 20100115
  Serious: Yes (Hospitalization)
  Sender: FDA-Public Use
  Company Number: CH-ASTRAZENECA-2009SE06896

PATIENT
  Age: 4 Year
  Sex: Female
  Weight: 15 kg

DRUGS (8)
  1. PROPOFOL [Suspect]
     Indication: SEDATIVE THERAPY
     Dosage: 90 MG 15 PER HOURS
     Route: 041
     Dates: start: 20090710, end: 20090710
  2. PROPOFOL [Suspect]
     Indication: PROPHYLAXIS
     Dosage: 90 MG 15 PER HOURS
     Route: 041
     Dates: start: 20090710, end: 20090710
  3. PROPOFOL [Suspect]
     Dosage: 90 MG 15 PER HOURS
     Route: 041
     Dates: start: 20090710, end: 20090710
  4. MORPHINE [Concomitant]
     Dosage: 1 MG, 1 PER 6 DAYS
     Route: 042
     Dates: start: 20090710, end: 20090710
  5. PORFALGAN [Concomitant]
     Route: 041
     Dates: start: 20090710, end: 20090710
  6. N-ACETYLCYSTEINE [Concomitant]
     Route: 041
     Dates: start: 20090710, end: 20090710
  7. ADRENALIN [Concomitant]
     Route: 041
     Dates: start: 20090710, end: 20090710
  8. ROCOPHIN [Concomitant]
     Route: 041
     Dates: start: 20090710, end: 20090714

REACTIONS (4)
  - ATAXIA [None]
  - DELIRIUM [None]
  - DYSKINESIA [None]
  - HALLUCINATION [None]
